FAERS Safety Report 9031403 (Version 1)
Quarter: 2013Q1

REPORT INFORMATION
  Report Type: Report from Study
  Country: FR (occurrence: FR)
  Receive Date: 20130124
  Receipt Date: 20130124
  Transmission Date: 20140127
  Serious: Yes (Hospitalization)
  Sender: FDA-Public Use
  Company Number: FR-PFIZER INC-2013023885

PATIENT
  Age: 68 Year
  Sex: Female
  Weight: 61 kg

DRUGS (2)
  1. TORISEL [Suspect]
     Dosage: 175 MG, WEEKLY
     Dates: start: 20100826, end: 20100910
  2. TORISEL [Suspect]
     Dosage: 75 MG, WEEKLY
     Dates: start: 20100930, end: 20110617

REACTIONS (1)
  - Lung disorder [Recovered/Resolved]
